FAERS Safety Report 15611509 (Version 4)
Quarter: 2025Q2

REPORT INFORMATION
  Report Type: Report from Study
  Country: DE (occurrence: DE)
  Receive Date: 20181113
  Receipt Date: 20250429
  Transmission Date: 20250716
  Serious: Yes (Other)
  Sender: AUROBINDO
  Company Number: DE-AUROBINDO-AUR-APL-2018-054860

PATIENT
  Age: 85 Year
  Sex: Female

DRUGS (5)
  1. IBANDRONIC ACID [Suspect]
     Active Substance: IBANDRONIC ACID
     Indication: Metastases to bone
     Route: 065
  2. IBANDRONIC ACID [Suspect]
     Active Substance: IBANDRONIC ACID
     Indication: Renal cancer metastatic
  3. SUNITINIB [Suspect]
     Active Substance: SUNITINIB
     Indication: Renal cancer metastatic
     Route: 065
  4. AMPICILLIN SODIUM\SULBACTAM SODIUM [Concomitant]
     Active Substance: AMPICILLIN SODIUM\SULBACTAM SODIUM
     Indication: Product used for unknown indication
     Route: 065
  5. DOXYCYCLINE [Concomitant]
     Active Substance: DOXYCYCLINE
     Indication: Product used for unknown indication
     Route: 065

REACTIONS (2)
  - Osteonecrosis of jaw [Unknown]
  - Periodontal disease [Unknown]
